FAERS Safety Report 9104859 (Version 1)
Quarter: 2013Q1

REPORT INFORMATION
  Report Type: Spontaneous
  Country: US (occurrence: US)
  Receive Date: 20130219
  Receipt Date: 20130219
  Transmission Date: 20140127
  Serious: No
  Sender: FDA-Public Use
  Company Number: US-009507513-1302USA006771

PATIENT
  Sex: Female

DRUGS (2)
  1. REMERON [Suspect]
     Indication: SLEEP DISORDER THERAPY
     Dosage: 15 MG, AT BEDTIME
     Dates: start: 201302, end: 201302
  2. LYRICA [Concomitant]

REACTIONS (1)
  - Somnolence [Recovered/Resolved]
